FAERS Safety Report 4496264-9 (Version None)
Quarter: 2004Q3

REPORT INFORMATION
  Report Type: 
  Country: None (occurrence: None)
  Receive Date: 20040921
  Receipt Date: 20040317
  Transmission Date: 20050211
  Serious: Yes (Hospitalization, Other)
  Sender: FDA-Public Use
  Company Number: 163-20785-040304949

PATIENT
  Age: 47 Year
  Sex: Male

DRUGS (20)
  1. THALOMID [Suspect]
     Indication: MULTIPLE MYELOMA
     Dosage: 200 MG, QD, ORAL; SEE IMAGE
     Route: 048
     Dates: start: 20030101, end: 20030115
  2. THALOMID [Suspect]
     Indication: MULTIPLE MYELOMA
     Dosage: 200 MG, QD, ORAL; SEE IMAGE
     Route: 048
     Dates: start: 20030116, end: 20030119
  3. THALOMID [Suspect]
     Indication: MULTIPLE MYELOMA
     Dosage: 200 MG, QD, ORAL; SEE IMAGE
     Route: 048
     Dates: start: 20030617, end: 20030629
  4. THALOMID [Suspect]
     Indication: MULTIPLE MYELOMA
     Dosage: 200 MG, QD, ORAL; SEE IMAGE
     Route: 048
     Dates: start: 20030630, end: 20030727
  5. THALOMID [Suspect]
     Indication: MULTIPLE MYELOMA
     Dosage: 200 MG, QD, ORAL; SEE IMAGE
     Route: 048
     Dates: start: 20031110, end: 20040205
  6. DEXAMETHASONE [Suspect]
     Indication: MULTIPLE MYELOMA
     Dosage: 40 MG, QD, ORAL
     Route: 048
     Dates: start: 20040205, end: 20040208
  7. CYCLOPHOSPHAMIDE [Suspect]
     Indication: MULTIPLE MYELOMA
     Dosage: 275 MG, QD, INTRAVENOUS
     Route: 042
     Dates: start: 20040205, end: 20040208
  8. ETOPOSIDE [Suspect]
     Indication: MULTIPLE MYELOMA
     Dosage: 27 MG, QD, INTRAVENOUS
     Route: 042
     Dates: start: 20040205, end: 20040208
  9. CISPLATIN [Suspect]
     Indication: MULTIPLE MYELOMA
     Dosage: 7 MG, QD, INTRAVENOUS
     Route: 042
     Dates: start: 20040205, end: 20040208
  10. ADRIAMYCIN PFS [Suspect]
     Indication: MULTIPLE MYELOMA
     Dosage: 7 MG, QD, INTRAVENOUS
     Route: 042
     Dates: start: 20040205, end: 20040208
  11. ACYCLOVIR [Concomitant]
  12. FOLIC ACID [Concomitant]
  13. MULTIVITAMIN [Concomitant]
  14. GATIFLOXACIN [Concomitant]
  15. IRON (IRON) [Concomitant]
  16. ZANTAC [Concomitant]
  17. FLUCONAZOLE [Concomitant]
  18. PROCRIT [Concomitant]
  19. COUMADIN [Concomitant]
  20. AREDIA [Concomitant]

REACTIONS (6)
  - CATHETER RELATED COMPLICATION [None]
  - DEEP VEIN THROMBOSIS [None]
  - DIZZINESS [None]
  - NEUROPATHY [None]
  - PNEUMOTHORAX [None]
  - SYNCOPE [None]
